FAERS Safety Report 7732137-3 (Version None)
Quarter: 2011Q3

REPORT INFORMATION
  Report Type: 
  Country: None (occurrence: None)
  Receive Date: 20110906
  Receipt Date: 20110811
  Transmission Date: 20111222
  Serious: Yes (Other)
  Sender: FDA-Public Use
  Company Number: US-AMGEN-USASP2011041163

PATIENT
  Age: 79 Year
  Sex: Female

DRUGS (6)
  1. LIPITOR [Concomitant]
  2. XANAX [Concomitant]
  3. METOPROLOL [Concomitant]
  4. ASPIRIN [Concomitant]
  5. PROLIA [Suspect]
     Indication: OSTEOPOROSIS POSTMENOPAUSAL
     Dosage: 60 MG, UNK
     Dates: start: 20110809
  6. SYNTHROID [Concomitant]

REACTIONS (4)
  - GINGIVAL PAIN [None]
  - TOOTHACHE [None]
  - OSTEONECROSIS OF JAW [None]
  - ORAL DISCOMFORT [None]
